FAERS Safety Report 4280740-8 (Version None)
Quarter: 2004Q1

REPORT INFORMATION
  Report Type: 
  Country: None (occurrence: None)
  Receive Date: 20040129
  Receipt Date: 20031201
  Transmission Date: 20041129
  Serious: No
  Sender: FDA-Public Use
  Company Number: US-BRISTOL-MYERS SQUIBB COMPANY-12447819

PATIENT
  Age: 60 Year
  Sex: Male
  Weight: 102 kg

DRUGS (1)
  1. METAGLIP [Suspect]
     Indication: DIABETES MELLITUS
     Dosage: DOSAGE FORM = TABLET (2.5MG/500MG PER TABLET)
     Route: 048

REACTIONS (1)
  - PULMONARY CONGESTION [None]
